FAERS Safety Report 9377399 (Version 1)
Quarter: 2013Q3

REPORT INFORMATION
  Report Type: Spontaneous
  Country: US (occurrence: US)
  Receive Date: 20130701
  Receipt Date: 20130701
  Transmission Date: 20140515
  Serious: Yes (Other)
  Sender: FDA-Public Use
  Company Number: US-TEVA-392650USA

PATIENT
  Age: 26 Year
  Sex: Female
  Weight: 81.27 kg

DRUGS (5)
  1. PARAGARD 380A [Suspect]
     Indication: CONTRACEPTION
     Route: 015
     Dates: start: 20130218, end: 20130311
  2. KEPRA [Concomitant]
  3. TOPAMAX [Concomitant]
  4. LAMICTAL [Concomitant]
  5. ACYCLOVIR [Concomitant]

REACTIONS (1)
  - Device dislocation [Not Recovered/Not Resolved]
